FAERS Safety Report 13962773 (Version 2)
Quarter: 2017Q3

REPORT INFORMATION
  Report Type: Spontaneous
  Country: US (occurrence: US)
  Receive Date: 20170913
  Receipt Date: 20170922
  Transmission Date: 20171128
  Serious: Yes (Hospitalization)
  Sender: FDA-Public Use
  Company Number: US-ROCHE-1992642

PATIENT
  Age: 15 Year
  Sex: Female

DRUGS (6)
  1. DULERA [Concomitant]
     Active Substance: FORMOTEROL FUMARATE DIHYDRATE\MOMETASONE FUROATE
     Indication: ASTHMA
     Dosage: 2 PUFFS BID
     Route: 055
  2. DYMISTA [Concomitant]
     Active Substance: AZELASTINE HYDROCHLORIDE\FLUTICASONE PROPIONATE
     Dosage: ONE SPRAY IN EACH NOSTRIL BID
     Route: 045
  3. XOLAIR [Suspect]
     Active Substance: OMALIZUMAB
     Indication: ASTHMA
     Route: 058
     Dates: start: 20170901, end: 20170901
  4. SINGULAIR [Concomitant]
     Active Substance: MONTELUKAST SODIUM
     Dosage: 1 TAB QHS
     Route: 048
  5. EPIPEN [Concomitant]
     Active Substance: EPINEPHRINE
     Dosage: PRN FOR ANAPHYLAXIS
     Route: 030
  6. XOLAIR [Suspect]
     Active Substance: OMALIZUMAB
     Indication: RHINITIS ALLERGIC

REACTIONS (4)
  - Laryngeal disorder [Unknown]
  - Urticaria [Unknown]
  - Pruritus [Unknown]
  - Anaphylactic reaction [Recovered/Resolved]

NARRATIVE: CASE EVENT DATE: 20170901
